FAERS Safety Report 23421885 (Version 1)
Quarter: 2024Q1

REPORT INFORMATION
  Report Type: Spontaneous
  Country: GB (occurrence: GB)
  Receive Date: 20240119
  Receipt Date: 20240119
  Transmission Date: 20240410
  Serious: Yes (Other)
  Sender: FDA-Public Use
  Company Number: None

PATIENT
  Age: 29 Year

DRUGS (2)
  1. ARIPIPRAZOLE [Suspect]
     Active Substance: ARIPIPRAZOLE
     Route: 065
  2. DULOXETINE [Concomitant]
     Active Substance: DULOXETINE

REACTIONS (2)
  - Medication error [Unknown]
  - Gambling [Not Recovered/Not Resolved]
